FAERS Safety Report 17307824 (Version 1)
Quarter: 2020Q1

REPORT INFORMATION
  Report Type: Spontaneous
  Country: US (occurrence: US)
  Receive Date: 20200123
  Receipt Date: 20200123
  Transmission Date: 20200409
  Serious: No
  Sender: FDA-Public Use
  Company Number: US-ALLERGAN-1925304US

PATIENT
  Sex: Male

DRUGS (1)
  1. MONUROL [Suspect]
     Active Substance: FOSFOMYCIN TROMETHAMINE
     Indication: URINARY TRACT INFECTION
     Dosage: EVERY 3 DAYS
     Route: 048
     Dates: start: 201808

REACTIONS (3)
  - Urinary tract infection [Unknown]
  - Off label use [Unknown]
  - Inappropriate schedule of product administration [Unknown]
